FAERS Safety Report 5885154-2 (Version None)
Quarter: 2008Q3

REPORT INFORMATION
  Report Type: 
  Country: None (occurrence: None)
  Receive Date: 20080916
  Receipt Date: 20080910
  Transmission Date: 20090109
  Serious: Yes (Hospitalization)
  Sender: FDA-Public Use
  Company Number: CN-ASTRAZENECA-2008AP07165

PATIENT
  Age: 59 Year
  Sex: Male

DRUGS (1)
  1. RHINOCORT [Suspect]
     Indication: RHINITIS
     Route: 045
     Dates: start: 20080301, end: 20080501

REACTIONS (1)
  - GLIOMA [None]
